FAERS Safety Report 6317221-3 (Version None)
Quarter: 2009Q3

REPORT INFORMATION
  Report Type: 
  Country: None (occurrence: None)
  Receive Date: 20090819
  Receipt Date: 20090805
  Transmission Date: 20100115
  Serious: Yes (Hospitalization)
  Sender: FDA-Public Use
  Company Number: 2009US000015

PATIENT
  Age: 82 Year
  Sex: Female

DRUGS (4)
  1. ENTEREG [Suspect]
     Indication: POSTOPERATIVE ILEUS
     Dosage: 12 MG; ; PO
     Route: 048
     Dates: start: 20090707, end: 20090710
  2. NEXIUM [Concomitant]
  3. ELAVIL [Concomitant]
  4. CARAFATE [Concomitant]

REACTIONS (1)
  - DIARRHOEA [None]
